FAERS Safety Report 4445002-4 (Version None)
Quarter: 2004Q3

REPORT INFORMATION
  Report Type: 
  Country: None (occurrence: None)
  Receive Date: 20040907
  Receipt Date: 20040825
  Transmission Date: 20050211
  Serious: No
  Sender: FDA-Public Use
  Company Number: 2004AC00255

PATIENT
  Age: 1 Month
  Sex: Female
  Weight: 3.6 kg

DRUGS (3)
  1. ROPIVACAINE [Suspect]
     Indication: ANALGESIC EFFECT
     Dosage: 4 ML ONCE ED
     Route: 008
  2. ROPIVACAINE [Suspect]
     Indication: ANALGESIC EFFECT
     Dosage: 0.8 ML / HR ED
     Route: 008
  3. ATRACURIUM BESYLATE [Concomitant]

REACTIONS (11)
  - ANAL DILATATION [None]
  - ATONIC URINARY BLADDER [None]
  - AUTONOMIC NERVOUS SYSTEM IMBALANCE [None]
  - CARDIOMYOPATHY [None]
  - HAEMATOCRIT DECREASED [None]
  - HYPOVOLAEMIA [None]
  - POST PROCEDURAL HAEMORRHAGE [None]
  - PROCEDURAL COMPLICATION [None]
  - RECTAL PROLAPSE [None]
  - SPINAL HAEMATOMA [None]
  - SUDDEN CARDIAC DEATH [None]
